FAERS Safety Report 11151980 (Version 2)
Quarter: 2015Q2

REPORT INFORMATION
  Report Type: Spontaneous
  Country: VE (occurrence: VE)
  Receive Date: 20150601
  Receipt Date: 20150604
  Transmission Date: 20150821
  Serious: Yes (Death, Other)
  Sender: FDA-Public Use
  Company Number: VE-PFIZER INC-2015179902

PATIENT
  Age: 8 Day
  Sex: Female
  Weight: 2.53 kg

DRUGS (1)
  1. PROSTIN [Suspect]
     Active Substance: ALPROSTADIL
     Indication: CONGENITAL CARDIOVASCULAR ANOMALY
     Dosage: 1 DF (0.025 MICROGRAMS PER KILOGRAM ON AN CONTINUES INFUSION)

REACTIONS (5)
  - Oxygen saturation decreased [Recovered/Resolved]
  - Apnoea [Recovered/Resolved]
  - Death [Fatal]
  - Respiratory arrest [Recovered/Resolved]
  - Off label use [Unknown]

NARRATIVE: CASE EVENT DATE: 20150519
